FAERS Safety Report 18122904 (Version 1)
Quarter: 2020Q3

REPORT INFORMATION
  Report Type: Spontaneous
  Country: DE (occurrence: DE)
  Receive Date: 20200807
  Receipt Date: 20200807
  Transmission Date: 20201103
  Serious: Yes (Hospitalization, Other)
  Sender: FDA-Public Use
  Company Number: DE-DRREDDYS-GER/GER/20/0125641

PATIENT
  Age: 30 Year
  Sex: Male

DRUGS (8)
  1. QUETIAPINE. [Suspect]
     Active Substance: QUETIAPINE
     Indication: SCHIZOPHRENIA
     Dosage: IN CHANGING DOSES: MAX 700 MG DAILY
     Route: 048
  2. VALPROIC ACID. [Concomitant]
     Active Substance: VALPROIC ACID
     Indication: SCHIZOPHRENIA
     Dosage: INITIATED AT AGE 33
  3. VENLAFAXINE [Suspect]
     Active Substance: VENLAFAXINE HYDROCHLORIDE
     Route: 048
  4. CLOMIPRAMINE [Concomitant]
     Active Substance: CLOMIPRAMINE
     Indication: SCHIZOPHRENIA
     Dosage: 150 MG/DAY
     Route: 065
  5. QUETIAPINE. [Suspect]
     Active Substance: QUETIAPINE
     Indication: SCHIZOPHRENIA
     Dosage: IN CHANGING DOSES: MAX 1200 MG DAILY
     Route: 048
  6. VENLAFAXINE [Suspect]
     Active Substance: VENLAFAXINE HYDROCHLORIDE
     Dosage: IN CHANGING DOSES: MAX. 300 MG DAILY
     Route: 048
  7. VENLAFAXINE [Suspect]
     Active Substance: VENLAFAXINE HYDROCHLORIDE
     Indication: OBSESSIVE-COMPULSIVE DISORDER
     Route: 048
  8. VENLAFAXINE [Suspect]
     Active Substance: VENLAFAXINE HYDROCHLORIDE
     Indication: APATHY
     Dosage: IN CHANGING DOSES: MAX. 300 MG DAILY
     Route: 048

REACTIONS (22)
  - Tachyphrenia [Unknown]
  - Withdrawal syndrome [Recovered/Resolved]
  - Psychomotor hyperactivity [Recovering/Resolving]
  - Drug abuse [Recovered/Resolved]
  - Dysphoria [Unknown]
  - Drug dependence [Unknown]
  - Euphoric mood [Recovered/Resolved]
  - Drug withdrawal syndrome [Recovered/Resolved]
  - Prescribed overdose [Unknown]
  - Delusion of grandeur [Unknown]
  - Logorrhoea [Unknown]
  - Dissociation [Unknown]
  - Mania [Recovered/Resolved]
  - Drug abuse [Unknown]
  - Off label use [Recovered/Resolved]
  - Disturbance in attention [Unknown]
  - Impulsive behaviour [Unknown]
  - Abnormal behaviour [Unknown]
  - Agitation [Recovered/Resolved]
  - Intentional product misuse [Unknown]
  - Psychomotor hyperactivity [Recovered/Resolved]
  - Treatment noncompliance [Unknown]
